FAERS Safety Report 25862200 (Version 1)
Quarter: 2025Q3

REPORT INFORMATION
  Report Type: Spontaneous
  Country: US (occurrence: US)
  Receive Date: 20250930
  Receipt Date: 20250930
  Transmission Date: 20251021
  Serious: No
  Sender: MERCK SHARP & DOHME LLC
  Company Number: US-009507513-2334244

PATIENT
  Sex: Male
  Weight: 68 kg

DRUGS (32)
  1. SOTATERCEPT [Suspect]
     Active Substance: SOTATERCEPT
     Dates: start: 2025, end: 202509
  2. SOTATERCEPT [Suspect]
     Active Substance: SOTATERCEPT
  3. SOTATERCEPT [Suspect]
     Active Substance: SOTATERCEPT
  4. SOTATERCEPT [Suspect]
     Active Substance: SOTATERCEPT
  5. TYVASO [Suspect]
     Active Substance: TREPROSTINIL
     Indication: Pulmonary arterial hypertension
     Dosage: STRENGTH: 0.6 MG/ML; 18 ?G, QID, INHALATION
     Route: 055
     Dates: start: 202507, end: 202507
  6. TYVASO [Suspect]
     Active Substance: TREPROSTINIL
     Indication: Pulmonary arterial hypertension
     Dosage: STRENGTH: 0.6 MG/ML; 6 ?G, QID, INHALATION
     Route: 055
     Dates: start: 202507, end: 202507
  7. TYVASO [Suspect]
     Active Substance: TREPROSTINIL
     Indication: Pulmonary arterial hypertension
     Dosage: STRENGTH: 0.6 MG/ML; 12 ?G, QID, INHALATION
     Route: 055
     Dates: start: 202507, end: 2025
  8. TYVASO [Suspect]
     Active Substance: TREPROSTINIL
     Indication: Pulmonary arterial hypertension
     Dosage: STRENGTH: 0.6 MG/ML; 18 ?G, QID, INHALATION
     Route: 055
     Dates: start: 2025, end: 2025
  9. TYVASO [Suspect]
     Active Substance: TREPROSTINIL
     Indication: Pulmonary arterial hypertension
     Dosage: STRENGTH: 0.6 MG/ML; 12 ?G, QID, INHALATION
     Route: 055
     Dates: start: 2025, end: 202509
  10. TYVASO [Suspect]
     Active Substance: TREPROSTINIL
     Indication: Pulmonary arterial hypertension
     Route: 055
     Dates: start: 20250711, end: 202509
  11. FORMOTEROL FUMARATE [Concomitant]
     Active Substance: FORMOTEROL FUMARATE
  12. FAMOTIDINE [Concomitant]
     Active Substance: FAMOTIDINE
  13. PREDNISONE [Concomitant]
     Active Substance: PREDNISONE
  14. FUROSEMIDE [Concomitant]
     Active Substance: FUROSEMIDE
  15. NAC (Acetylcysteine, Selenomethionine, Sodium molybdate) [Concomitant]
  16. PANTOPRAZOLE SODIUM [Concomitant]
     Active Substance: PANTOPRAZOLE SODIUM
  17. BUDESONIDE [Concomitant]
     Active Substance: BUDESONIDE
  18. METFORMIN HYDROCHLORIDE [Concomitant]
     Active Substance: METFORMIN HYDROCHLORIDE
  19. TEZSPIRE [Concomitant]
     Active Substance: TEZEPELUMAB-EKKO
  20. MONTELUKAST SODIUM [Concomitant]
     Active Substance: MONTELUKAST SODIUM
  21. OXYGEN [Concomitant]
     Active Substance: OXYGEN
  22. GABAPENTIN [Concomitant]
     Active Substance: GABAPENTIN
  23. ROSUVASTATIN CALCIUM [Concomitant]
     Active Substance: ROSUVASTATIN CALCIUM
  24. TAMSULOSIN HYDROCHLORIDE [Concomitant]
     Active Substance: TAMSULOSIN HYDROCHLORIDE
  25. SULFAMETHOXAZOLE AND TRIMETHOPRIM [Concomitant]
     Active Substance: SULFAMETHOXAZOLE\TRIMETHOPRIM
  26. POTASSIUM [Concomitant]
     Active Substance: POTASSIUM
  27. VITAMIN D3 [Concomitant]
     Active Substance: CHOLECALCIFEROL
  28. LEVALBUTEROL [Concomitant]
     Active Substance: LEVALBUTEROL
  29. ASPIRIN [Concomitant]
     Active Substance: ASPIRIN
  30. RANOLAZINE [Concomitant]
     Active Substance: RANOLAZINE
  31. AZATHIOPRINE [Concomitant]
     Active Substance: AZATHIOPRINE
  32. TYLENOL [Concomitant]
     Active Substance: ACETAMINOPHEN

REACTIONS (1)
  - Feeling abnormal [Unknown]

NARRATIVE: CASE EVENT DATE: 20250101
